FAERS Safety Report 6681910-1 (Version None)
Quarter: 2010Q2

REPORT INFORMATION
  Report Type: 
  Country: None (occurrence: None)
  Receive Date: 20100405
  Receipt Date: 20100323
  Transmission Date: 20101027
  Serious: Yes (Other)
  Sender: FDA-Public Use
  Company Number: US-IGSA-IG656

PATIENT
  Age: 54 Hour
  Weight: 1.66 kg

DRUGS (2)
  1. FLEBOGAMMA 5% (HUMAN NORMAL IMMUNOGLOBULIN IV) [Suspect]
     Indication: ISOIMMUNE HAEMOLYTIC DISEASE
     Dosage: 500 MG/KG IV
     Route: 042
     Dates: start: 20081201
  2. FENOBARBITAL [Concomitant]

REACTIONS (1)
  - NECROTISING ENTEROCOLITIS NEONATAL [None]
